FAERS Safety Report 8325530-1 (Version None)
Quarter: 2012Q2

REPORT INFORMATION
  Report Type: 
  Country: None (occurrence: None)
  Receive Date: 20120427
  Receipt Date: 20120425
  Transmission Date: 20120825
  Serious: Yes (Other)
  Sender: FDA-Public Use
  Company Number: ADR-2011-11501

PATIENT
  Sex: Female

DRUGS (2)
  1. BACLOFEN [Suspect]
     Indication: MUSCLE SPASTICITY
     Dosage: 340 MCG, DAILY, INTRATH
     Route: 037
  2. BACLOFEN [Suspect]
     Indication: MULTIPLE SCLEROSIS
     Dosage: 340 MCG, DAILY, INTRATH
     Route: 037

REACTIONS (8)
  - DIZZINESS [None]
  - MEDICAL DEVICE COMPLICATION [None]
  - OVERDOSE [None]
  - ASTHENIA [None]
  - ABNORMAL BEHAVIOUR [None]
  - MUSCLE SPASTICITY [None]
  - DISORIENTATION [None]
  - FEELING DRUNK [None]
